FAERS Safety Report 18881310 (Version 3)
Quarter: 2021Q3

REPORT INFORMATION
  Report Type: Report from Study
  Country: BR (occurrence: BR)
  Receive Date: 20210211
  Receipt Date: 20210719
  Transmission Date: 20211014
  Serious: Yes (Other)
  Sender: FDA-Public Use
  Company Number: NVSC2020BR346408

PATIENT
  Age: 45 Year
  Sex: Female
  Weight: 81 kg

DRUGS (11)
  1. KISQALI [Suspect]
     Active Substance: RIBOCICLIB
     Dosage: 2 DF, QD (21 DAYS)
     Route: 048
     Dates: start: 20210220, end: 20210312
  2. ANASTROZOL [Concomitant]
     Active Substance: ANASTROZOLE
     Dosage: UNK UNK, QD
     Route: 048
     Dates: start: 20201001
  3. KISQALI [Suspect]
     Active Substance: RIBOCICLIB
     Dosage: 3 DF
     Route: 065
  4. KISQALI [Suspect]
     Active Substance: RIBOCICLIB
     Indication: BREAST CANCER
     Dosage: 2 DF, QD (21 DAYS)
     Route: 048
     Dates: start: 20201111, end: 20201201
  5. KISQALI [Suspect]
     Active Substance: RIBOCICLIB
     Dosage: 2 DF, QD (21 DAYS)
     Route: 048
     Dates: start: 20210409, end: 20210429
  6. ZOLADEX [Concomitant]
     Active Substance: GOSERELIN ACETATE
     Indication: MENOPAUSE
     Dosage: 3.6 MG
     Route: 065
     Dates: start: 20201111
  7. ZOLADEX [Concomitant]
     Active Substance: GOSERELIN ACETATE
     Dosage: UNK UNK, QMO
     Route: 058
     Dates: start: 20201001
  8. KISQALI [Suspect]
     Active Substance: RIBOCICLIB
     Indication: HORMONE RECEPTOR POSITIVE BREAST CANCER
     Dosage: 2 DF, QD (21 DAYS)
     Route: 048
     Dates: start: 20210104, end: 20210124
  9. KISQALI [Suspect]
     Active Substance: RIBOCICLIB
     Dosage: 2 DF, QD (21 DAYS)
     Route: 048
     Dates: start: 20210519, end: 20210608
  10. ANASTROZOL [Concomitant]
     Active Substance: ANASTROZOLE
     Indication: ANTIOESTROGEN THERAPY
     Dosage: UNK UNK, QD
     Route: 048
     Dates: start: 20201111
  11. ANASTROZOL [Concomitant]
     Active Substance: ANASTROZOLE
     Dosage: UNK
     Route: 065

REACTIONS (4)
  - Immunodeficiency [Recovering/Resolving]
  - Neutrophil count decreased [Recovered/Resolved]
  - Immunodeficiency [Recovered/Resolved]
  - Inappropriate schedule of product administration [Unknown]

NARRATIVE: CASE EVENT DATE: 20201209
